FAERS Safety Report 13839747 (Version 1)
Quarter: 2017Q3

REPORT INFORMATION
  Report Type: Spontaneous
  Country: US (occurrence: US)
  Receive Date: 20170805
  Receipt Date: 20170805
  Transmission Date: 20171127
  Serious: Yes (Hospitalization)
  Sender: FDA-Public Use
  Company Number: None

PATIENT
  Age: 69 Year
  Sex: Male
  Weight: 90.72 kg

DRUGS (1)
  1. SULFAMETHIZOLE/TRIMETHOPRIM [Suspect]
     Active Substance: SULFAMETHOXAZOLE\TRIMETHOPRIM
     Indication: PROPHYLAXIS
     Route: 048
     Dates: start: 20170708, end: 20170708

REACTIONS (9)
  - Stevens-Johnson syndrome [None]
  - Rash [None]
  - Eye pain [None]
  - Angioedema [None]
  - Erythema [None]
  - Anaphylactic reaction [None]
  - Swelling face [None]
  - Lip swelling [None]
  - Eschar [None]

NARRATIVE: CASE EVENT DATE: 20170708
